FAERS Safety Report 8153220-7 (Version None)
Quarter: 2012Q1

REPORT INFORMATION
  Report Type: 
  Country: None (occurrence: None)
  Receive Date: 20120221
  Receipt Date: 20120215
  Transmission Date: 20120608
  Serious: Yes (Other)
  Sender: FDA-Public Use
  Company Number: US-JNJFOC-20120208778

PATIENT
  Age: 46 Year
  Sex: Female
  Weight: 71.67 kg

DRUGS (3)
  1. MINOXIDIL [Suspect]
     Route: 061
  2. MINOXIDIL [Suspect]
     Indication: HAIR GROWTH ABNORMAL
     Dosage: SQUIRT A PILE ON HER HEAD
     Route: 061
  3. UNKNOWN MEDICATION [Concomitant]
     Route: 065

REACTIONS (5)
  - PARAESTHESIA [None]
  - WRONG DRUG ADMINISTERED [None]
  - MULTIPLE SCLEROSIS [None]
  - UNDERDOSE [None]
  - HYPOAESTHESIA [None]
